FAERS Safety Report 12876961 (Version 3)
Quarter: 2017Q2

REPORT INFORMATION
  Report Type: Spontaneous
  Country: JP (occurrence: JP)
  Receive Date: 20161024
  Receipt Date: 20170424
  Transmission Date: 20170830
  Serious: Yes (Hospitalization, Other)
  Sender: FDA-Public Use
  Company Number: JP-GLAXOSMITHKLINE-JP2016JPN152340

PATIENT
  Age: 41 Year
  Sex: Male
  Weight: 76 kg

DRUGS (3)
  1. VALACICLOVIR [Suspect]
     Active Substance: VALACYCLOVIR HYDROCHLORIDE
     Indication: OPHTHALMIC HERPES SIMPLEX
     Dosage: UNK
     Route: 048
     Dates: start: 20150217
  2. ZOVIRAX [Suspect]
     Active Substance: ACYCLOVIR
     Indication: OPHTHALMIC HERPES SIMPLEX
     Dosage: UNK, QD
     Route: 031
     Dates: start: 2004, end: 20150410
  3. TACROLIMUS HYDRATE [Concomitant]
     Active Substance: TACROLIMUS

REACTIONS (8)
  - Ophthalmic herpes simplex [Recovering/Resolving]
  - Drug resistance [Recovering/Resolving]
  - Disease progression [Recovering/Resolving]
  - Corneal disorder [Recovered/Resolved]
  - Incorrect drug administration duration [Unknown]
  - Corneal epithelium defect [Recovered/Resolved]
  - Keratitis [Recovered/Resolved]
  - Corneal opacity [Recovered/Resolved]

NARRATIVE: CASE EVENT DATE: 2015
